FAERS Safety Report 22354568 (Version 1)
Quarter: 2023Q2

REPORT INFORMATION
  Report Type: Spontaneous
  Country: US (occurrence: US)
  Receive Date: 20230523
  Receipt Date: 20230523
  Transmission Date: 20230721
  Serious: Yes (Hospitalization, Other)
  Sender: FDA-Public Use
  Company Number: US-TORRENT-00012669

PATIENT
  Age: 29 Year
  Sex: Female

DRUGS (2)
  1. TRAZODONE [Suspect]
     Active Substance: TRAZODONE HYDROCHLORIDE
     Indication: Product used for unknown indication
     Route: 048
  2. ASPIRIN [Suspect]
     Active Substance: ASPIRIN
     Indication: Product used for unknown indication
     Dosage: 500 TABLETS OF 325 MG
     Route: 048

REACTIONS (4)
  - Overdose [Unknown]
  - Seizure [Unknown]
  - Endotracheal intubation [Unknown]
  - Incorrect route of product administration [Unknown]
